FAERS Safety Report 6302401-3 (Version None)
Quarter: 2009Q3

REPORT INFORMATION
  Report Type: 
  Country: None (occurrence: None)
  Receive Date: 20090810
  Receipt Date: 20090731
  Transmission Date: 20100115
  Serious: No
  Sender: FDA-Public Use
  Company Number: KR-JNJFOC-20090800046

PATIENT
  Sex: Male

DRUGS (1)
  1. DURAGESIC-100 [Suspect]
     Indication: BACK PAIN
     Dosage: TWO 12.5 UG/HR
     Route: 062

REACTIONS (1)
  - INCORRECT DOSE ADMINISTERED [None]
